FAERS Safety Report 17889710 (Version 1)
Quarter: 2020Q2

REPORT INFORMATION
  Report Type: Spontaneous
  Country: US (occurrence: US)
  Receive Date: 20200612
  Receipt Date: 20200612
  Transmission Date: 20200714
  Serious: Yes (Hospitalization)
  Sender: FDA-Public Use
  Company Number: None

PATIENT
  Age: 59 Year
  Sex: Female

DRUGS (1)
  1. BENLYSTA [Suspect]
     Active Substance: BELIMUMAB
     Indication: THYROIDITIS
     Dosage: ?
     Route: 058

REACTIONS (2)
  - Therapy interrupted [None]
  - Knee operation [None]

NARRATIVE: CASE EVENT DATE: 20200611
